FAERS Safety Report 16648791 (Version 1)
Quarter: 2019Q3

REPORT INFORMATION
  Report Type: Spontaneous
  Country: US (occurrence: US)
  Receive Date: 20190730
  Receipt Date: 20190730
  Transmission Date: 20191004
  Serious: Yes (Other)
  Sender: FDA-Public Use
  Company Number: US-ASTRAZENECA-2019SF06188

PATIENT
  Sex: Male

DRUGS (1)
  1. PULMICORT FLEXHALER [Suspect]
     Active Substance: BUDESONIDE
     Dosage: 180.0UG UNKNOWN
     Route: 055

REACTIONS (6)
  - Device malfunction [Unknown]
  - Wrong technique in device usage process [Unknown]
  - Medication error [Unknown]
  - Intentional product misuse [Unknown]
  - Product dose omission [Unknown]
  - Deafness [Unknown]
